FAERS Safety Report 17240713 (Version 1)
Quarter: 2019Q4

REPORT INFORMATION
  Report Type: Spontaneous
  Country: US (occurrence: US)
  Receive Date: 20191211
  Receipt Date: 20191211
  Transmission Date: 20200122
  Serious: Yes (Hospitalization)
  Sender: FDA-Public Use
  Company Number: None

PATIENT
  Age: 57 Year
  Sex: Female
  Weight: 58.5 kg

DRUGS (15)
  1. ACETAMINPHEN [Concomitant]
  2. ALBUTEROL SULFATE. [Concomitant]
     Active Substance: ALBUTEROL SULFATE
  3. LORAZEPAM. [Concomitant]
     Active Substance: LORAZEPAM
  4. NICOTINE. [Concomitant]
     Active Substance: NICOTINE
  5. ONDANSETRON [Concomitant]
     Active Substance: ONDANSETRON
  6. POTASSIUM CHLORIDE. [Concomitant]
     Active Substance: POTASSIUM CHLORIDE
  7. PLYETHYLENE GLYCOL 3350 [Concomitant]
  8. LISINOPRIL. [Concomitant]
     Active Substance: LISINOPRIL
  9. OMEPRAZOLE. [Concomitant]
     Active Substance: OMEPRAZOLE
  10. OXYCODONE HC1 [Concomitant]
  11. CALCIUM CARBONATE. [Concomitant]
     Active Substance: CALCIUM CARBONATE
  12. DOXIL [Suspect]
     Active Substance: DOXORUBICIN HYDROCHLORIDE
     Dates: end: 20191115
  13. PROCHLORPERAZONE MALEATE [Concomitant]
  14. IBUPROFEN. [Concomitant]
     Active Substance: IBUPROFEN
  15. MAGNESIUM CHLORIDE. [Concomitant]
     Active Substance: MAGNESIUM CHLORIDE

REACTIONS (7)
  - Vomiting [None]
  - Nausea [None]
  - Infrequent bowel movements [None]
  - Hypophagia [None]
  - Disease progression [None]
  - Small intestinal obstruction [None]
  - Abdominal distension [None]

NARRATIVE: CASE EVENT DATE: 20191113
